FAERS Safety Report 10274339 (Version 1)
Quarter: 2014Q3

REPORT INFORMATION
  Report Type: Spontaneous
  Country: US (occurrence: US)
  Receive Date: 20140702
  Receipt Date: 20140702
  Transmission Date: 20150326
  Serious: Yes (Other)
  Sender: FDA-Public Use
  Company Number: US-BAYER-2014-099161

PATIENT
  Age: 26 Year
  Sex: Female

DRUGS (1)
  1. MIRENA [Suspect]
     Active Substance: LEVONORGESTREL
     Indication: CONTRACEPTION
     Dosage: 20 MCG/24HR, CONT
     Dates: start: 20120217

REACTIONS (12)
  - Pain in jaw [None]
  - Mood altered [None]
  - Convulsion [None]
  - Convulsion [None]
  - Belligerence [None]
  - Headache [None]
  - Foaming at mouth [None]
  - Irritability [None]
  - Epileptic aura [None]
  - Fall [None]
  - Fall [None]
  - Muscle twitching [None]

NARRATIVE: CASE EVENT DATE: 201312
